FAERS Safety Report 4675623-5 (Version None)
Quarter: 2005Q2

REPORT INFORMATION
  Report Type: 
  Country: None (occurrence: None)
  Receive Date: 20050525
  Receipt Date: 20050509
  Transmission Date: 20051028
  Serious: Yes (Life-Threatening)
  Sender: FDA-Public Use
  Company Number: 2005-DE-01741GD

PATIENT
  Age: 18 Year
  Sex: Female

DRUGS (3)
  1. SALBUTAMOL            (SALBUTAMOL) [Suspect]
     Indication: ASTHMA
     Dosage: SEE IMAGE
     Route: 055
  2. SALBUTAMOL            (SALBUTAMOL) [Suspect]
     Indication: CONDITION AGGRAVATED
     Dosage: SEE IMAGE
     Route: 055
  3. CORTICOSTEROIDS          (CORTICOSTEROIDS) [Concomitant]

REACTIONS (10)
  - FATIGUE [None]
  - HEART RATE INCREASED [None]
  - HYPERGLYCAEMIA [None]
  - HYPOKALAEMIA [None]
  - LACTIC ACIDOSIS [None]
  - METABOLIC ACIDOSIS [None]
  - RESPIRATORY ACIDOSIS [None]
  - RESPIRATORY FAILURE [None]
  - SOMNOLENCE [None]
  - TACHYPNOEA [None]
